FAERS Safety Report 13960424 (Version 2)
Quarter: 2017Q4

REPORT INFORMATION
  Report Type: Spontaneous
  Country: TW (occurrence: TW)
  Receive Date: 20170912
  Receipt Date: 20171009
  Transmission Date: 20180320
  Serious: Yes (Life-Threatening, Hospitalization, Other)
  Sender: FDA-Public Use
  Company Number: TW-CONCORDIA PHARMACEUTICALS INC.-E2B_00008367

PATIENT
  Age: 57 Year
  Sex: Female

DRUGS (6)
  1. PREDNISOLONE. [Suspect]
     Active Substance: PREDNISOLONE
     Indication: IMMUNOSUPPRESSION
  2. MYCOPHENOLATE MOFETIL. [Suspect]
     Active Substance: MYCOPHENOLATE MOFETIL
     Indication: IMMUNOSUPPRESSION
  3. ADVAGRAF [Suspect]
     Active Substance: TACROLIMUS
     Indication: IMMUNOSUPPRESSION
     Dosage: ON DECREASED DOSE
  4. SIROLIMUS. [Suspect]
     Active Substance: SIROLIMUS
     Indication: IMMUNOSUPPRESSION
     Dates: start: 201212
  5. ADVAGRAF [Suspect]
     Active Substance: TACROLIMUS
     Dosage: ON DECREASED DOSE
  6. ADVAGRAF [Suspect]
     Active Substance: TACROLIMUS

REACTIONS (3)
  - Pleural effusion [Recovering/Resolving]
  - Pneumocystis jirovecii pneumonia [Recovering/Resolving]
  - Bronchiolitis [Recovering/Resolving]
